FAERS Safety Report 6764445-7 (Version None)
Quarter: 2010Q2

REPORT INFORMATION
  Report Type: 
  Country: None (occurrence: None)
  Receive Date: 20100609
  Receipt Date: 20100310
  Transmission Date: 20101027
  Serious: No
  Sender: FDA-Public Use
  Company Number: 2010006360

PATIENT
  Age: 2 Year
  Sex: Female
  Weight: 15.4223 kg

DRUGS (1)
  1. CHILDREN'S ZYRTEC ALLERGY [Suspect]
     Indication: HYPERSENSITIVITY
     Dosage: TWO AND A HALF MLS ONCE DAILY,ORAL
     Route: 048
     Dates: start: 20100210

REACTIONS (2)
  - ACCIDENTAL EXPOSURE [None]
  - OVERDOSE [None]
